FAERS Safety Report 25161856 (Version 2)
Quarter: 2025Q2

REPORT INFORMATION
  Report Type: Spontaneous
  Country: US (occurrence: US)
  Receive Date: 20250404
  Receipt Date: 20250422
  Transmission Date: 20250717
  Serious: Yes (Hospitalization, Other)
  Sender: FRESENIUS KABI
  Company Number: US-FreseniusKabi-FK202504989

PATIENT
  Age: 73 Year
  Sex: Male

DRUGS (3)
  1. FLUDARABINE [Suspect]
     Active Substance: FLUDARABINE PHOSPHATE
     Indication: Chemotherapy
     Dosage: FORM OF ADMIN.: INFUSION
     Route: 042
     Dates: start: 20250302, end: 20250302
  2. CB-012 [Suspect]
     Active Substance: CB-012
     Indication: Acute myeloid leukaemia
     Route: 042
     Dates: end: 20250305
  3. CYCLOPHOSPHAMIDE [Suspect]
     Active Substance: CYCLOPHOSPHAMIDE
     Indication: Chemotherapy
     Dosage: FORM OF ADMIN.: INFUSION
     Route: 042
     Dates: start: 20250302, end: 20250302

REACTIONS (3)
  - Febrile neutropenia [Recovered/Resolved]
  - Pseudomonal bacteraemia [Unknown]
  - Off label use [Unknown]

NARRATIVE: CASE EVENT DATE: 20250302
